FAERS Safety Report 7662371-2 (Version None)
Quarter: 2011Q3

REPORT INFORMATION
  Report Type: 
  Country: None (occurrence: None)
  Receive Date: 20110805
  Receipt Date: 20101230
  Transmission Date: 20111222
  Serious: No
  Sender: FDA-Public Use
  Company Number: US-ABBOTT-11P-163-0694729-00

PATIENT
  Sex: Male
  Weight: 99.426 kg

DRUGS (2)
  1. NIASPAN [Suspect]
     Indication: HIGH DENSITY LIPOPROTEIN DECREASED
     Dates: start: 20101223
  2. LANTUS [Concomitant]
     Indication: DIABETES MELLITUS

REACTIONS (1)
  - FLUSHING [None]
